FAERS Safety Report 8856311 (Version 1)
Quarter: 2012Q4

REPORT INFORMATION
  Report Type: Spontaneous
  Country: CA (occurrence: None)
  Receive Date: 20121018
  Receipt Date: 20121018
  Transmission Date: 20130627
  Serious: Yes (Life-Threatening)
  Sender: FDA-Public Use
  Company Number: DSU-2012-08125

PATIENT
  Age: 56 Year
  Sex: Female
  Weight: 73 kg

DRUGS (3)
  1. OLMETEC (OLMESARTAN MEDOXOMIL) [Suspect]
     Indication: DRUG USE FOR UNKNOWN INDICATION
     Route: 048
  2. ESTRACE [Concomitant]
  3. NOVOLIN [Concomitant]

REACTIONS (5)
  - Amnesia [None]
  - Depression [None]
  - Narcolepsy [None]
  - Suicidal ideation [None]
  - Weight increased [None]
